FAERS Safety Report 8937051 (Version 1)
Quarter: 2012Q4

REPORT INFORMATION
  Report Type: Report from Study
  Country: GB (occurrence: US)
  Receive Date: 20121130
  Receipt Date: 20121130
  Transmission Date: 20130627
  Serious: Yes (Hospitalization)
  Sender: FDA-Public Use
  Company Number: US-BRISTOL-MYERS SQUIBB COMPANY-14138408

PATIENT
  Age: 77 Year
  Sex: Male

DRUGS (4)
  1. IPILIMUMAB [Suspect]
     Indication: MALIGNANT MELANOMA
     Dosage: Also admin. on 03-Jan-2008 and 15-Apr-2008 (121 ml).
     Route: 042
     Dates: start: 20071031, end: 20080925
  2. OMEPRAZOLE [Concomitant]
     Dates: start: 2004
  3. TRAVOPROST [Concomitant]
     Dosage: Formulation=eye drops
     Route: 047
     Dates: start: 2005
  4. ASA [Concomitant]
     Dates: start: 2005

REACTIONS (1)
  - Diarrhoea [Recovered/Resolved]
